FAERS Safety Report 16202185 (Version 1)
Quarter: 2019Q2

REPORT INFORMATION
  Report Type: Spontaneous
  Country: JP (occurrence: JP)
  Receive Date: 20190416
  Receipt Date: 20190416
  Transmission Date: 20190711
  Serious: Yes (Disabling)
  Sender: FDA-Public Use
  Company Number: JP-BAYER-2019-075319

PATIENT
  Age: 9 Decade
  Sex: Female

DRUGS (2)
  1. ADEMPAS [Suspect]
     Active Substance: RIOCIGUAT
     Indication: PULMONARY HYPERTENSION
     Dosage: 0.5 MG, TID
  2. SAMSCA [Suspect]
     Active Substance: TOLVAPTAN

REACTIONS (1)
  - Cerebral infarction [Recovered/Resolved with Sequelae]
